FAERS Safety Report 6726007-7 (Version None)
Quarter: 2010Q2

REPORT INFORMATION
  Report Type: 
  Country: None (occurrence: None)
  Receive Date: 20100512
  Receipt Date: 20100430
  Transmission Date: 20101027
  Serious: Yes (Hospitalization)
  Sender: FDA-Public Use
  Company Number: 230120M09GBR

PATIENT
  Age: 40 Year
  Sex: Female

DRUGS (1)
  1. REBIF [Suspect]
     Dosage: 44 MCG,  3 IN 1 WK
     Dates: start: 20080819, end: 20090919

REACTIONS (1)
  - PANCREATITIS ACUTE [None]
